FAERS Safety Report 13059048 (Version 11)
Quarter: 2017Q3

REPORT INFORMATION
  Report Type: Spontaneous
  Country: US (occurrence: US)
  Receive Date: 20161223
  Receipt Date: 20170817
  Transmission Date: 20171127
  Serious: Yes (Hospitalization, Other)
  Sender: FDA-Public Use
  Company Number: US-HORIZON-ACT-0298-2016

PATIENT
  Age: 31 Year
  Sex: Male
  Weight: 66 kg

DRUGS (4)
  1. BACTRIM [Concomitant]
     Active Substance: SULFAMETHOXAZOLE\TRIMETHOPRIM
  2. POSACONAZOLE [Concomitant]
     Active Substance: POSACONAZOLE
  3. ACTIMMUNE [Suspect]
     Active Substance: INTERFERON GAMMA-1B
     Indication: CHRONIC GRANULOMATOUS DISEASE
     Dosage: 100 ?G TIW
     Dates: start: 20131226, end: 20161212
  4. SEPTRA [Concomitant]
     Active Substance: SULFAMETHOXAZOLE\TRIMETHOPRIM

REACTIONS (4)
  - Lymphadenopathy [Recovered/Resolved]
  - Staphylococcal infection [Recovered/Resolved]
  - Weight increased [Unknown]
  - Protein total increased [Recovered/Resolved]

NARRATIVE: CASE EVENT DATE: 201612
